FAERS Safety Report 11811291 (Version 2)
Quarter: 2015Q4

REPORT INFORMATION
  Report Type: Spontaneous
  Country: JP (occurrence: JP)
  Receive Date: 20151208
  Receipt Date: 20151223
  Transmission Date: 20160305
  Serious: Yes (Other)
  Sender: FDA-Public Use
  Company Number: JP-BAXALTA-2015BLT002997

PATIENT
  Age: 16 Month
  Sex: Male

DRUGS (3)
  1. GAMMAGARD [Suspect]
     Active Substance: HUMAN IMMUNOGLOBULIN G
     Indication: KAWASAKI^S DISEASE
     Dosage: 2 G/KG, UNK
     Route: 042
  2. ASPIRIN. [Suspect]
     Active Substance: ASPIRIN
     Indication: KAWASAKI^S DISEASE
     Dosage: 30 MG/KG, 1X A DAY
     Route: 065
  3. PREDNISOLONE. [Suspect]
     Active Substance: PREDNISOLONE
     Indication: KAWASAKI^S DISEASE
     Dosage: 2 MG/KG, 1X A DAY
     Route: 065

REACTIONS (2)
  - Pantoea agglomerans infection [Unknown]
  - Bacteraemia [Unknown]
